FAERS Safety Report 8830084 (Version 1)
Quarter: 2012Q4

REPORT INFORMATION
  Report Type: Report from Study
  Country: US (occurrence: US)
  Receive Date: 20121008
  Receipt Date: 20121008
  Transmission Date: 20130627
  Serious: No
  Sender: FDA-Public Use
  Company Number: US-VERTEX PHARMACEUTICAL INC.-AE-2012-006951

PATIENT
  Age: 46 Year
  Sex: Male
  Weight: 90 kg

DRUGS (8)
  1. VX-950 [Suspect]
     Indication: HEPATITIS C
     Dosage: UNK
     Route: 048
     Dates: start: 20120309
  2. PEGASYS [Concomitant]
     Indication: HEPATITIS C
     Dosage: 180 ?g, UNK
     Route: 058
     Dates: start: 20120309
  3. RIBAPAK [Concomitant]
     Indication: HEPATITIS C
     Dosage: UNK
     Dates: start: 20120309
  4. METFORMIN [Concomitant]
  5. LISINOPRIL [Concomitant]
  6. METOPROLOL [Concomitant]
  7. HYDROCHLOROTHIAZIDE [Concomitant]
  8. AMLODIPINE [Concomitant]

REACTIONS (13)
  - Dyspnoea [Unknown]
  - Weight decreased [Unknown]
  - Decreased appetite [Unknown]
  - Dizziness [Unknown]
  - Anxiety [Unknown]
  - Irritability [Unknown]
  - Disturbance in attention [Unknown]
  - Dry skin [Unknown]
  - Dry mouth [Unknown]
  - Fatigue [Unknown]
  - Dysgeusia [Unknown]
  - Rash erythematous [Recovered/Resolved]
  - Pruritus [Unknown]
